FAERS Safety Report 9054869 (Version 1)
Quarter: 2013Q1

REPORT INFORMATION
  Report Type: Spontaneous
  Country: US (occurrence: US)
  Receive Date: 20130208
  Receipt Date: 20130208
  Transmission Date: 20140127
  Serious: No
  Sender: FDA-Public Use
  Company Number: US-TEVA-384293USA

PATIENT
  Age: 24 None
  Sex: Female
  Weight: 74.91 kg

DRUGS (2)
  1. PLAN B ONE-STEP [Suspect]
     Indication: POST COITAL CONTRACEPTION
     Dosage: 1.5 MILLIGRAM DAILY;
     Route: 048
     Dates: start: 20130103, end: 20130103
  2. VITAMINS [Concomitant]
     Indication: MEDICAL DIET
     Route: 048
     Dates: start: 2011

REACTIONS (1)
  - Menstruation irregular [Not Recovered/Not Resolved]
